FAERS Safety Report 5800380-6 (Version None)
Quarter: 2008Q3

REPORT INFORMATION
  Report Type: 
  Country: None (occurrence: None)
  Receive Date: 20080703
  Receipt Date: 20080620
  Transmission Date: 20090109
  Serious: Yes (Hospitalization)
  Sender: FDA-Public Use
  Company Number: IT-MERCK-0806ITA00024

PATIENT
  Age: 31 Year
  Sex: Female
  Weight: 76 kg

DRUGS (7)
  1. SINGULAIR [Suspect]
     Indication: ASTHMA
     Route: 048
     Dates: end: 20070101
  2. SALMETEROL [Concomitant]
     Indication: ASTHMA
     Route: 065
  3. FLUTICASONE FUROATE [Concomitant]
     Indication: ASTHMA
     Route: 065
  4. THEOPHYLLINE [Concomitant]
     Indication: ASTHMA
     Route: 065
     Dates: end: 20070101
  5. PREDNISONE [Concomitant]
     Indication: ASTHMA
     Route: 048
  6. OMALIZUMAB [Concomitant]
     Indication: ASTHMA
     Route: 051
     Dates: start: 20070508
  7. [THERAPY UNSPECIFIED] [Concomitant]
     Route: 065

REACTIONS (6)
  - ASTHMA [None]
  - BRONCHOPNEUMONIA [None]
  - DRUG INEFFECTIVE [None]
  - DYSPNOEA [None]
  - NASAL CONGESTION [None]
  - RHINITIS [None]
